FAERS Safety Report 9882997 (Version 1)
Quarter: 2014Q1

REPORT INFORMATION
  Report Type: Spontaneous
  Country: US (occurrence: None)
  Receive Date: 20140205
  Receipt Date: 20140205
  Transmission Date: 20141002
  Serious: Yes (Death)
  Sender: FDA-Public Use
  Company Number: IMP_07395_2014

PATIENT
  Age: 21 Year
  Sex: Female

DRUGS (4)
  1. ALPRAZOLAM [Suspect]
     Dosage: DF
  2. HEROIN [Suspect]
     Dosage: DF
  3. CODEINE [Suspect]
     Dosage: DF
  4. QUETIAPINE [Suspect]
     Dosage: DF

REACTIONS (1)
  - Toxicity to various agents [None]
